FAERS Safety Report 5532677-1 (Version None)
Quarter: 2007Q4

REPORT INFORMATION
  Report Type: 
  Country: None (occurrence: None)
  Receive Date: 20071120
  Receipt Date: 20070727
  Transmission Date: 20080405
  Serious: No
  Sender: FDA-Public Use
  Company Number: WAES 0707USA04700

PATIENT
  Sex: Male

DRUGS (2)
  1. JANUVIA [Suspect]
     Dosage: PO
     Route: 048
     Dates: start: 20070401
  2. METFORMIN HCL [Concomitant]

REACTIONS (1)
  - GLYCOSYLATED HAEMOGLOBIN INCREASED [None]
